FAERS Safety Report 13783730 (Version 1)
Quarter: 2017Q3

REPORT INFORMATION
  Report Type: Report from Study
  Country: US (occurrence: US)
  Receive Date: 20170724
  Receipt Date: 20170724
  Transmission Date: 20171127
  Serious: Yes (Other)
  Sender: FDA-Public Use
  Company Number: US-TEVA-789794USA

PATIENT
  Age: 68 Year
  Sex: Male

DRUGS (3)
  1. ENOXAPARIN [Suspect]
     Active Substance: ENOXAPARIN
     Indication: PULMONARY EMBOLISM
     Route: 065
  2. ASPIRIN. [Suspect]
     Active Substance: ASPIRIN
     Indication: PULMONARY EMBOLISM
     Route: 065
  3. WARFARIN [Suspect]
     Active Substance: WARFARIN
     Indication: PULMONARY EMBOLISM
     Route: 065

REACTIONS (3)
  - Tumour haemorrhage [Recovering/Resolving]
  - Hydrocephalus [Recovering/Resolving]
  - Cerebrospinal fluid leakage [Recovering/Resolving]
